FAERS Safety Report 7738509-5 (Version None)
Quarter: 2011Q3

REPORT INFORMATION
  Report Type: 
  Country: None (occurrence: None)
  Receive Date: 20110906
  Receipt Date: 20110829
  Transmission Date: 20111222
  Serious: Yes (Other)
  Sender: FDA-Public Use
  Company Number: US-GDP-11411654

PATIENT
  Age: 25 Year
  Sex: Male

DRUGS (5)
  1. ELIDEL [Concomitant]
  2. CLOBEX [Suspect]
     Indication: PSORIASIS
     Dosage: TOPICAL
     Route: 061
  3. DOVONEX [Concomitant]
  4. COSMETICS [Concomitant]
  5. ASPIRIN [Concomitant]

REACTIONS (2)
  - RETINAL OEDEMA [None]
  - MACULAR OEDEMA [None]
